FAERS Safety Report 21873588 (Version 1)
Quarter: 2023Q1

REPORT INFORMATION
  Report Type: Spontaneous
  Country: IT (occurrence: IT)
  Receive Date: 20230117
  Receipt Date: 20230117
  Transmission Date: 20230418
  Serious: Yes (Other)
  Sender: FDA-Public Use
  Company Number: None

PATIENT
  Age: 65 Year
  Sex: Female

DRUGS (4)
  1. IRINOTECAN HYDROCHLORIDE [Suspect]
     Active Substance: IRINOTECAN HYDROCHLORIDE
     Indication: Colon cancer
     Dosage: 189 MG
     Route: 042
     Dates: start: 20221027, end: 20221122
  2. AFLIBERCEPT [Suspect]
     Active Substance: AFLIBERCEPT
     Indication: Colon cancer
     Dosage: 208 MG
     Route: 042
     Dates: start: 20221027, end: 20221122
  3. FLUOROURACIL [Suspect]
     Active Substance: FLUOROURACIL
     Indication: Colon cancer
     Dosage: 2520 MG
     Route: 040
     Dates: start: 20221027, end: 20221122
  4. FLUOROURACIL [Suspect]
     Active Substance: FLUOROURACIL
     Dosage: 420 MG
     Route: 042
     Dates: start: 20221027, end: 20221122

REACTIONS (2)
  - Anaemia [Recovering/Resolving]
  - Hyperbilirubinaemia [Recovering/Resolving]

NARRATIVE: CASE EVENT DATE: 20221205
